FAERS Safety Report 15842677 (Version 1)
Quarter: 2019Q1

REPORT INFORMATION
  Report Type: Spontaneous
  Country: GB (occurrence: GB)
  Receive Date: 20190118
  Receipt Date: 20190118
  Transmission Date: 20190417
  Serious: Yes (Other)
  Sender: FDA-Public Use
  Company Number: GB-LINDE-GB-LHC-2019008

PATIENT
  Age: 19 Year
  Sex: Male

DRUGS (1)
  1. NITROUS OXIDE (GENERIC) [Suspect]
     Active Substance: NITROUS OXIDE
     Indication: PRODUCT USED FOR UNKNOWN INDICATION
     Route: 055

REACTIONS (5)
  - Vitamin B12 deficiency [Recovered/Resolved]
  - Ataxia [Recovered/Resolved]
  - Myelopathy [Recovered/Resolved]
  - Drug abuse [Recovered/Resolved]
  - Peripheral sensory neuropathy [Recovered/Resolved]
